FAERS Safety Report 8341300-2 (Version None)
Quarter: 2012Q2

REPORT INFORMATION
  Report Type: 
  Country: None (occurrence: None)
  Receive Date: 20120507
  Receipt Date: 20091117
  Transmission Date: 20120825
  Serious: No
  Sender: FDA-Public Use
  Company Number: US-TEVA-2009028124

PATIENT

DRUGS (3)
  1. ALLOPURINOL [Suspect]
  2. TREANDA [Suspect]
     Route: 042
  3. RITUXAN [Suspect]

REACTIONS (2)
  - DRUG INTERACTION [None]
  - INFUSION SITE REACTION [None]
